FAERS Safety Report 18538982 (Version 2)
Quarter: 2020Q4

REPORT INFORMATION
  Report Type: Spontaneous
  Country: US (occurrence: US)
  Receive Date: 20201124
  Receipt Date: 20201202
  Transmission Date: 20210114
  Serious: No
  Sender: FDA-Public Use
  Company Number: US-BAYER-2020-254326

PATIENT
  Age: 68 Year
  Sex: Female

DRUGS (1)
  1. CLARITIN [Suspect]
     Active Substance: LORATADINE
     Indication: PRURITUS
     Dosage: 1 DF
     Route: 048

REACTIONS (3)
  - Product commingling [None]
  - Wrong technique in product usage process [None]
  - Product expiration date issue [Unknown]
